FAERS Safety Report 6425260-7 (Version None)
Quarter: 2009Q4

REPORT INFORMATION
  Report Type: 
  Country: None (occurrence: None)
  Receive Date: 20091030
  Receipt Date: 20091030
  Transmission Date: 20100525
  Serious: Yes (Life-Threatening, Hospitalization)
  Sender: FDA-Public Use
  Company Number: None

PATIENT
  Age: 61 Year
  Sex: Male
  Weight: 68.7 kg

DRUGS (1)
  1. LEVITRA [Suspect]
     Indication: ERECTILE DYSFUNCTION
     Dates: start: 20091023, end: 20091023

REACTIONS (3)
  - ACUTE MYOCARDIAL INFARCTION [None]
  - FALL [None]
  - VENTRICULAR FIBRILLATION [None]
